FAERS Safety Report 9924642 (Version 3)
Quarter: 2014Q2

REPORT INFORMATION
  Report Type: Spontaneous
  Country: US (occurrence: US)
  Receive Date: 20140226
  Receipt Date: 20140404
  Transmission Date: 20141212
  Serious: No
  Sender: FDA-Public Use
  Company Number: US-PFIZER INC-2014053897

PATIENT
  Age: 73 Year
  Sex: Female
  Weight: 66.67 kg

DRUGS (14)
  1. CELEBREX [Suspect]
     Indication: PAIN
     Dosage: 200 MG, DAILY
     Route: 048
  2. DETROL LA [Concomitant]
     Indication: HYPERTONIC BLADDER
     Dosage: 4 MG, DAILY
  3. PREVACID [Concomitant]
     Indication: GASTROOESOPHAGEAL REFLUX DISEASE
     Dosage: 30 MG, DAILY
  4. TUMS [Concomitant]
     Indication: GASTROOESOPHAGEAL REFLUX DISEASE
     Dosage: AT 1000MG AT AN UNKNOWN FREQUENCY (2-3 TIMES A DAY)
  5. LIPITOR [Concomitant]
     Indication: BLOOD CHOLESTEROL ABNORMAL
     Dosage: 10 MG, DAILY
  6. SALAGEN [Concomitant]
     Indication: SALIVARY HYPERSECRETION
     Dosage: 5 MG, 4X/DAY
  7. VIVELLE-DOT [Concomitant]
     Indication: HORMONE REPLACEMENT THERAPY
     Dosage: 0.1 MG, 2X/WEEK
  8. GLUCOSAMINE [Concomitant]
     Indication: ARTHRALGIA
     Dosage: 1500 MG, DAILY
  9. CHONDROITIN [Concomitant]
     Indication: ARTHRALGIA
     Dosage: 1200 MG, DAILY
  10. CENTRUM SILVER WOMENS 50+ [Concomitant]
     Indication: VITAMIN SUPPLEMENTATION
     Dosage: UNK
  11. PROBIOTICS [Concomitant]
     Dosage: UNK
  12. BISACODYL [Concomitant]
     Indication: DRUG ABUSE
     Dosage: 5 MG, DAILY
  13. BABY ASPIRIN [Concomitant]
     Indication: BLOOD VISCOSITY INCREASED
     Dosage: 81 MG, DAILY
  14. COLACE [Concomitant]
     Indication: FAECES SOFT
     Dosage: UNK

REACTIONS (2)
  - Arthritis [Unknown]
  - Drug effect decreased [Unknown]
